FAERS Safety Report 21385507 (Version 4)
Quarter: 2023Q1

REPORT INFORMATION
  Report Type: Report from Study
  Country: CO (occurrence: CO)
  Receive Date: 20220928
  Receipt Date: 20230106
  Transmission Date: 20230418
  Serious: Yes (Disabling, Other)
  Sender: FDA-Public Use
  Company Number: CO-ASTELLAS-2022US034334

PATIENT
  Age: 69 Year
  Sex: Female
  Weight: 56 kg

DRUGS (1)
  1. TACROLIMUS [Suspect]
     Active Substance: TACROLIMUS
     Indication: Renal transplant
     Dosage: 1.5 MG, ONCE DAILY, (0.5 MG (1 CAPSULE) AND 1 MG (1 CAPSULE))
     Route: 048
     Dates: start: 20170523

REACTIONS (11)
  - Dry throat [Recovered/Resolved]
  - Retinal detachment [Recovered/Resolved]
  - Cataract [Recovered/Resolved]
  - Blood creatinine increased [Not Recovered/Not Resolved]
  - Vision blurred [Not Recovered/Not Resolved]
  - Cough [Recovered/Resolved]
  - COVID-19 [Recovered/Resolved]
  - COVID-19 [Recovered/Resolved]
  - Inflammation [Recovered/Resolved]
  - Blindness [Recovered/Resolved]
  - Viral infection [Recovered/Resolved]

NARRATIVE: CASE EVENT DATE: 20190101
